FAERS Safety Report 26185130 (Version 1)
Quarter: 2025Q4

REPORT INFORMATION
  Report Type: Spontaneous
  Country: IR (occurrence: IR)
  Receive Date: 20251222
  Receipt Date: 20251222
  Transmission Date: 20260119
  Serious: Yes (Hospitalization, Disabling, Other)
  Sender: MICRO LABS LIMITED
  Company Number: IR-MICRO LABS LIMITED-ML2025-06640

PATIENT
  Sex: Male

DRUGS (17)
  1. DEXAMETHASONE [Suspect]
     Active Substance: DEXAMETHASONE
     Indication: Weight increased
  2. DEXAMETHASONE [Suspect]
     Active Substance: DEXAMETHASONE
     Indication: Atrophy
  3. DEXAMETHASONE [Suspect]
     Active Substance: DEXAMETHASONE
     Indication: Skin hyperpigmentation
  4. DEXAMETHASONE [Suspect]
     Active Substance: DEXAMETHASONE
     Indication: Performance enhancing product use
  5. CLONAZEPAM [Concomitant]
     Active Substance: CLONAZEPAM
     Indication: Depression
  6. CLONAZEPAM [Concomitant]
     Active Substance: CLONAZEPAM
     Indication: Irritability
  7. CLONAZEPAM [Concomitant]
     Active Substance: CLONAZEPAM
     Indication: Anxiety
  8. CLONAZEPAM [Concomitant]
     Active Substance: CLONAZEPAM
     Indication: Restlessness
  9. TRIHEXYPHENIDYL [Concomitant]
     Active Substance: TRIHEXYPHENIDYL
     Indication: Intentional product misuse
  10. TRIHEXYPHENIDYL [Concomitant]
     Active Substance: TRIHEXYPHENIDYL
     Indication: Depression
  11. TRIHEXYPHENIDYL [Concomitant]
     Active Substance: TRIHEXYPHENIDYL
     Indication: Irritability
  12. TRIHEXYPHENIDYL [Concomitant]
     Active Substance: TRIHEXYPHENIDYL
     Indication: Anxiety
  13. TRIHEXYPHENIDYL [Concomitant]
     Active Substance: TRIHEXYPHENIDYL
     Indication: Restlessness
  14. TRAMADOL [Concomitant]
     Active Substance: TRAMADOL
     Indication: Product used for unknown indication
  15. METHADONE [Concomitant]
     Active Substance: METHADONE HYDROCHLORIDE
     Indication: Product used for unknown indication
  16. CYPROHEPTADINE [Concomitant]
     Active Substance: CYPROHEPTADINE
     Indication: Product used for unknown indication
  17. BUPRENORPHINE [Concomitant]
     Active Substance: BUPRENORPHINE
     Indication: Product used for unknown indication

REACTIONS (3)
  - Major depression [Recovered/Resolved with Sequelae]
  - Intentional product misuse [Unknown]
  - Osteonecrosis [Recovered/Resolved with Sequelae]
